FAERS Safety Report 23923469 (Version 2)
Quarter: 2024Q2

REPORT INFORMATION
  Report Type: Other
  Country: CA (occurrence: None)
  Receive Date: 20240531
  Receipt Date: 20240610
  Transmission Date: 20240716
  Serious: Yes (Other)
  Sender: FDA-Public Use
  Company Number: CA-ROCHE-3570659

PATIENT
  Age: 70 Year
  Sex: Male
  Weight: 82.5 kg

DRUGS (16)
  1. ACTEMRA [Suspect]
     Active Substance: TOCILIZUMAB
     Indication: Rheumatoid arthritis
     Route: 042
     Dates: start: 20220421
  2. ACTEMRA [Suspect]
     Active Substance: TOCILIZUMAB
     Route: 042
  3. ASPIRIN [Concomitant]
     Active Substance: ASPIRIN
  4. PERINDOPRIL [Concomitant]
     Active Substance: PERINDOPRIL
  5. ACLIDINIUM BROMIDE\FORMOTEROL FUMARATE [Concomitant]
     Active Substance: ACLIDINIUM BROMIDE\FORMOTEROL FUMARATE
  6. FOLIC ACID [Concomitant]
     Active Substance: FOLIC ACID
  7. FUROSEMIDE [Concomitant]
     Active Substance: FUROSEMIDE
  8. IBUPROFEN [Concomitant]
     Active Substance: IBUPROFEN
  9. METHOTREXATE [Concomitant]
     Active Substance: METHOTREXATE
  10. ACETAMINOPHEN\OXYCODONE HYDROCHLORIDE [Concomitant]
     Active Substance: ACETAMINOPHEN\OXYCODONE HYDROCHLORIDE
  11. PERINDOPRIL ERBUMINE [Concomitant]
     Active Substance: PERINDOPRIL ERBUMINE
  12. ALBUTEROL [Concomitant]
     Active Substance: ALBUTEROL
  13. TYLENOL [Concomitant]
     Active Substance: ACETAMINOPHEN
  14. TYLENOL ARTHRITIS PAIN [Concomitant]
     Active Substance: ACETAMINOPHEN
  15. CEPHALEXIN [Concomitant]
     Active Substance: CEPHALEXIN
  16. NAPROXEN [Concomitant]
     Active Substance: NAPROXEN

REACTIONS (2)
  - Joint injury [Recovered/Resolved]
  - Arthritis infective [Recovered/Resolved]

NARRATIVE: CASE EVENT DATE: 20240517
